FAERS Safety Report 4613368-8 (Version None)
Quarter: 2005Q1

REPORT INFORMATION
  Report Type: 
  Country: None (occurrence: None)
  Receive Date: 20050316
  Receipt Date: 20050228
  Transmission Date: 20050727
  Serious: Yes (Other)
  Sender: FDA-Public Use
  Company Number: S05-UKI-00928-01

PATIENT
  Age: 47 Year
  Sex: Male

DRUGS (2)
  1. CIPRALEX (ESCITALOPRAM) [Suspect]
     Indication: DEPRESSION
     Dosage: 10 MG QD PO
     Route: 048
     Dates: start: 20040805, end: 20041030
  2. ATENOLOL [Concomitant]

REACTIONS (5)
  - BALANCE DISORDER [None]
  - CLONUS [None]
  - EXTENSOR PLANTAR RESPONSE [None]
  - FATIGUE [None]
  - REFLEXES ABNORMAL [None]
